FAERS Safety Report 7063697-6 (Version None)
Quarter: 2010Q4

REPORT INFORMATION
  Report Type: 
  Country: None (occurrence: None)
  Receive Date: 20101026
  Receipt Date: 20101014
  Transmission Date: 20110411
  Serious: Yes (Hospitalization)
  Sender: FDA-Public Use
  Company Number: BR-US-EMD SERONO, INC.-7022481

PATIENT
  Sex: Female

DRUGS (7)
  1. REBIF [Suspect]
     Indication: RELAPSING-REMITTING MULTIPLE SCLEROSIS
     Route: 058
     Dates: start: 20080501
  2. CARBAMAZEPINE [Concomitant]
  3. TEGRETOL [Concomitant]
  4. AMPLICTIL [Concomitant]
  5. SERTRALINE [Concomitant]
  6. SIMVASTATIN [Concomitant]
  7. LOVAZA [Concomitant]

REACTIONS (3)
  - ASTHENIA [None]
  - CONVULSION [None]
  - PAIN [None]
